FAERS Safety Report 25608215 (Version 1)
Quarter: 2025Q3

REPORT INFORMATION
  Report Type: Spontaneous
  Country: CN (occurrence: CN)
  Receive Date: 20250725
  Receipt Date: 20250725
  Transmission Date: 20251020
  Serious: Yes (Other)
  Sender: NOVARTIS
  Company Number: CN-002147023-NVSC2025CN116226

PATIENT
  Age: 81 Year
  Sex: Female

DRUGS (7)
  1. SACUBITRIL\VALSARTAN [Suspect]
     Active Substance: SACUBITRIL\VALSARTAN
     Indication: Symptomatic treatment
     Dosage: 50 MG, BID (14 TABLETS)
     Route: 048
     Dates: start: 20250616, end: 20250626
  2. LANSOPRAZOLE [Suspect]
     Active Substance: LANSOPRAZOLE
     Indication: Symptomatic treatment
     Dosage: 30 MG, QD (ENTERIC-COATED CAPSULES)
     Route: 048
     Dates: start: 20250616, end: 20250626
  3. RIVAROXABAN [Suspect]
     Active Substance: RIVAROXABAN
     Indication: Symptomatic treatment
     Dosage: 15 MG, QD (5 COLLECTIVE PROCUREMENT)
     Route: 048
     Dates: start: 20250616, end: 20250626
  4. EMPAGLIFLOZIN [Suspect]
     Active Substance: EMPAGLIFLOZIN
     Indication: Symptomatic treatment
     Dosage: 10 MG, QD (10)
     Route: 048
     Dates: start: 20250616, end: 20250626
  5. PIPERACILLIN SODIUM\TAZOBACTAM SODIUM [Suspect]
     Active Substance: PIPERACILLIN SODIUM\TAZOBACTAM SODIUM
     Indication: Symptomatic treatment
     Dosage: 4.5 G, TID (POWDER-INJECTION)
     Route: 041
     Dates: start: 20250616, end: 20250626
  6. SPIRONOLACTONE [Suspect]
     Active Substance: SPIRONOLACTONE
     Indication: Symptomatic treatment
     Dosage: 20 MG, QD
     Route: 048
     Dates: start: 20250616, end: 20250626
  7. ATORVASTATIN CALCIUM [Suspect]
     Active Substance: ATORVASTATIN CALCIUM
     Indication: Symptomatic treatment
     Dosage: 10 MG, QD (28 QIANJIN COLLECTIVE PROCUREMENT)
     Route: 048
     Dates: start: 20250616, end: 20250626

REACTIONS (4)
  - Drug eruption [Recovering/Resolving]
  - Pruritus [Recovering/Resolving]
  - Rash erythematous [Recovering/Resolving]
  - Dermatitis allergic [Recovering/Resolving]

NARRATIVE: CASE EVENT DATE: 20250621
